FAERS Safety Report 24120042 (Version 4)
Quarter: 2024Q4

REPORT INFORMATION
  Report Type: Spontaneous
  Country: GR (occurrence: GR)
  Receive Date: 20240722
  Receipt Date: 20241008
  Transmission Date: 20250115
  Serious: Yes (Death, Hospitalization, Other)
  Sender: PFIZER
  Company Number: GR-PFIZER INC-PV202400093746

PATIENT
  Sex: Male
  Weight: 60 kg

DRUGS (1)
  1. VYNDAQEL [Suspect]
     Active Substance: TAFAMIDIS MEGLUMINE
     Indication: Cardiac amyloidosis
     Dosage: 61 MG
     Route: 048

REACTIONS (5)
  - Death [Fatal]
  - Chills [Unknown]
  - Feeling cold [Unknown]
  - Pyrexia [Unknown]
  - Haematocrit decreased [Not Recovered/Not Resolved]

NARRATIVE: CASE EVENT DATE: 20240715
